FAERS Safety Report 20630404 (Version 2)
Quarter: 2022Q1

REPORT INFORMATION
  Report Type: Spontaneous
  Country: JP (occurrence: JP)
  Receive Date: 20220324
  Receipt Date: 20220328
  Transmission Date: 20220424
  Serious: Yes (Death)
  Sender: FDA-Public Use
  Company Number: JP-ASTELLAS-2022JP003848

PATIENT
  Age: 77 Year
  Sex: Female

DRUGS (2)
  1. TACROLIMUS [Suspect]
     Active Substance: TACROLIMUS
     Indication: Renal transplant
     Route: 048
     Dates: end: 20220307
  2. TACROLIMUS [Suspect]
     Active Substance: TACROLIMUS
     Indication: Renal transplant
     Dosage: 0.5 MG, ONCE DAILY
     Route: 048
     Dates: end: 20220307

REACTIONS (2)
  - COVID-19 [Fatal]
  - Dysphagia [Unknown]

NARRATIVE: CASE EVENT DATE: 20220302
